FAERS Safety Report 9403131 (Version 2)
Quarter: 2015Q3

REPORT INFORMATION
  Report Type: Spontaneous
  Country: DK (occurrence: DK)
  Receive Date: 20130716
  Receipt Date: 20150827
  Transmission Date: 20151125
  Serious: Yes (Hospitalization)
  Sender: FDA-Public Use
  Company Number: DK-BAYER-2013-083267

PATIENT
  Age: 57 Year
  Sex: Female
  Weight: 61 kg

DRUGS (2)
  1. MIRENA [Suspect]
     Active Substance: LEVONORGESTREL
     Indication: MENOMETRORRHAGIA
     Dosage: 20 MCG/24HR, CONT
     Route: 015
     Dates: start: 201001, end: 20130507
  2. CODEINE PHOSPHATE [Concomitant]
     Active Substance: CODEINE PHOSPHATE
     Indication: RESTLESS LEGS SYNDROME
     Dosage: 12.5 MG, PRN

REACTIONS (27)
  - Cognitive disorder [Recovering/Resolving]
  - Head discomfort [Recovering/Resolving]
  - Osteoporosis [Not Recovered/Not Resolved]
  - Dysfunctional uterine bleeding [Recovered/Resolved]
  - Cognitive disorder [Not Recovered/Not Resolved]
  - Mood altered [Recovering/Resolving]
  - Insomnia [Recovering/Resolving]
  - Trigger finger [Recovered/Resolved]
  - Hormone level abnormal [Recovering/Resolving]
  - Memory impairment [Recovering/Resolving]
  - Headache [Recovering/Resolving]
  - Gastrooesophageal reflux disease [Recovered/Resolved]
  - Seborrhoea [Recovered/Resolved]
  - Thyroid neoplasm [Recovering/Resolving]
  - Oedema peripheral [Recovering/Resolving]
  - Palpitations [Recovered/Resolved]
  - Arthralgia [Recovered/Resolved]
  - Myalgia [Recovering/Resolving]
  - Pain in extremity [Recovered/Resolved]
  - Hot flush [Recovering/Resolving]
  - Extrasystoles [Recovered/Resolved]
  - Tendon pain [Recovered/Resolved]
  - Muscle spasms [Recovered/Resolved]
  - Stress [Recovering/Resolving]
  - Menopausal symptoms [Recovering/Resolving]
  - Synovial cyst [Recovering/Resolving]
  - Joint swelling [Recovering/Resolving]

NARRATIVE: CASE EVENT DATE: 2010
